FAERS Safety Report 5614422-4 (Version None)
Quarter: 2008Q1

REPORT INFORMATION
  Report Type: 
  Country: None (occurrence: None)
  Receive Date: 20080205
  Receipt Date: 20080128
  Transmission Date: 20080703
  Serious: Yes (Other)
  Sender: FDA-Public Use
  Company Number: GB-ABBOTT-08P-167-0434058-00

PATIENT
  Age: 72 Year
  Sex: Male

DRUGS (4)
  1. KLARICID [Suspect]
     Indication: POST PROCEDURAL INFECTION
     Route: 048
  2. DIOXIGIN [Concomitant]
     Indication: DRUG USE FOR UNKNOWN INDICATION
  3. WARFARIN SODIUM [Concomitant]
     Indication: THROMBOSIS PROPHYLAXIS
     Dates: end: 20080107
  4. SIMVASTATIN [Concomitant]
     Indication: DRUG USE FOR UNKNOWN INDICATION

REACTIONS (2)
  - ORAL INTAKE REDUCED [None]
  - OROPHARYNGEAL BLISTERING [None]
